FAERS Safety Report 19443898 (Version 1)
Quarter: 2021Q2

REPORT INFORMATION
  Report Type: Report from Study
  Country: AT (occurrence: AT)
  Receive Date: 20210621
  Receipt Date: 20210621
  Transmission Date: 20210717
  Serious: Yes (Other)
  Sender: FDA-Public Use
  Company Number: NVSC2021AT131873

PATIENT

DRUGS (1)
  1. METFORMIN [Suspect]
     Active Substance: METFORMIN HYDROCHLORIDE
     Indication: DIABETES MELLITUS
     Dosage: UNK
     Route: 065

REACTIONS (11)
  - Lipids abnormal [Unknown]
  - Hypertension [Unknown]
  - Paraesthesia [Unknown]
  - Blood cholesterol increased [Unknown]
  - Neuropathy peripheral [Unknown]
  - Blood triglycerides increased [Unknown]
  - Hypoaesthesia [Unknown]
  - Peripheral arterial occlusive disease [Unknown]
  - Vision blurred [Unknown]
  - Obesity [Unknown]
  - Nerve injury [Unknown]
